FAERS Safety Report 8815786 (Version 1)
Quarter: 2012Q4

REPORT INFORMATION
  Report Type: 
  Country: US (occurrence: US)
  Receive Date: 20120928
  Receipt Date: 20120928
  Transmission Date: 20130627
  Serious: No
  Sender: FDA-Public Use
  Company Number: US-009507513-1208USA005467

PATIENT

DRUGS (2)
  1. ISENTRESS [Suspect]
     Indication: HIV INFECTION
     Dosage: 400 mg, bid
     Route: 048
     Dates: end: 20120803
  2. TRUVADA [Concomitant]

REACTIONS (4)
  - Pain [Recovered/Resolved]
  - Swelling [Recovered/Resolved]
  - Abdominal discomfort [Recovered/Resolved]
  - Product odour abnormal [Unknown]
